FAERS Safety Report 5188287-1 (Version None)
Quarter: 2006Q4

REPORT INFORMATION
  Report Type: 
  Country: None (occurrence: None)
  Receive Date: 20061221
  Receipt Date: 20061218
  Transmission Date: 20070319
  Serious: Yes (Life-Threatening)
  Sender: FDA-Public Use
  Company Number: 2006JP005261

PATIENT
  Age: 69 Year
  Sex: Male

DRUGS (4)
  1. CEFAZOLIN [Suspect]
     Indication: PROPHYLAXIS
     Dosage: 2G PER DAY
     Route: 065
     Dates: start: 20060829, end: 20060829
  2. MIDAZOLAM HYDROCHLORIDE [Suspect]
     Indication: SENSORY DISTURBANCE
     Dosage: 10MG PER DAY
     Route: 065
     Dates: start: 20060829, end: 20060829
  3. LIPITOR [Concomitant]
     Indication: DRUG USE FOR UNKNOWN INDICATION
     Route: 065
     Dates: start: 20060824
  4. BACTROBAN [Concomitant]
     Indication: DRUG USE FOR UNKNOWN INDICATION
     Route: 045
     Dates: start: 20060828

REACTIONS (6)
  - ANAPHYLACTIC REACTION [None]
  - ARRHYTHMIA [None]
  - ERYTHEMA [None]
  - HYPOTENSION [None]
  - TACHYCARDIA [None]
  - URTICARIA [None]
